FAERS Safety Report 25606526 (Version 4)
Quarter: 2025Q4

REPORT INFORMATION
  Report Type: Report from Study
  Country: US (occurrence: US)
  Receive Date: 20250725
  Receipt Date: 20251018
  Transmission Date: 20260118
  Serious: Yes (Other)
  Sender: IPSEN BIOPHARMACEUTICALS, INC.
  Company Number: US-IPSEN Group, Research and Development-2025-18052

PATIENT
  Age: 64 Year
  Sex: Female
  Weight: 88 kg

DRUGS (17)
  1. BYLVAY [Suspect]
     Active Substance: ODEVIXIBAT
     Indication: Progressive familial intrahepatic cholestasis
     Dosage: 1 CAPSULE (400MCG) ONCE DAILY
     Route: 048
  2. BYLVAY [Suspect]
     Active Substance: ODEVIXIBAT
     Dosage: 3CAPSULES (1200MCG) ONCE DAILY
     Route: 048
  3. BYLVAY [Suspect]
     Active Substance: ODEVIXIBAT
     Dosage: 10 CAPSULES (4000MCG) ONCE DAILY.
     Route: 048
     Dates: start: 20250712, end: 20250716
  4. FOSAMAX [Concomitant]
     Active Substance: ALENDRONATE SODIUM
     Indication: Osteoporosis
     Route: 048
  5. NORVASC [Concomitant]
     Active Substance: AMLODIPINE BESYLATE
     Indication: Hypertension
     Route: 048
  6. ALLEGRA-D [Concomitant]
     Active Substance: FEXOFENADINE HYDROCHLORIDE\PSEUDOEPHEDRINE HYDROCHLORIDE
     Indication: Hypersensitivity
     Dosage: 180-240 MG, PER 24 HRS TABLET
     Route: 048
  7. ATORVALIQ [Concomitant]
     Active Substance: ATORVASTATIN CALCIUM TRIHYDRATE
  8. CALCIUM 600+D [CALCIUM;COLECALCIFEROL] [Concomitant]
     Dosage: 600-10 MG-MCG CAPS
  9. COZAAR [Concomitant]
     Active Substance: LOSARTAN POTASSIUM
  10. OZEMPIC [Concomitant]
     Active Substance: SEMAGLUTIDE
     Dosage: 0.25 OR 0.5 G/DOSE (2 MG/3 ML INJECTION)
  11. PREVACID [Concomitant]
     Active Substance: LANSOPRAZOLE
  12. ACTIGALL [Concomitant]
     Active Substance: URSODIOL
     Indication: Cholestasis
     Dosage: MANY YEARS
     Route: 048
  13. LIPITOR [Concomitant]
     Active Substance: ATORVASTATIN CALCIUM
  14. ATARAX [Concomitant]
     Active Substance: HYDROXYZINE HYDROCHLORIDE
  15. TALTZ [Concomitant]
     Active Substance: IXEKIZUMAB
     Dosage: 20 MG/0.25 ML SOSY
  16. REGLAN [Concomitant]
     Active Substance: METOCLOPRAMIDE HYDROCHLORIDE
  17. TRENTAL [Concomitant]
     Active Substance: PENTOXIFYLLINE
     Dosage: ER TABLET

REACTIONS (6)
  - Cold sweat [Recovered/Resolved]
  - Abdominal pain [Recovered/Resolved]
  - Diarrhoea [Recovered/Resolved]
  - Nausea [Recovered/Resolved]
  - Weight decreased [Recovered/Resolved]
  - Pruritus [Unknown]

NARRATIVE: CASE EVENT DATE: 20250714
